FAERS Safety Report 26132795 (Version 1)
Quarter: 2025Q4

REPORT INFORMATION
  Report Type: Spontaneous
  Country: US (occurrence: US)
  Receive Date: 20251208
  Receipt Date: 20251208
  Transmission Date: 20260119
  Serious: Yes (Hospitalization, Other)
  Sender: COLLEGIUM PHARMACEUTICAL
  Company Number: US-COLLEGIUM PHARMACEUTICAL, INC.-20251202807

PATIENT
  Age: 64 Year
  Sex: Female

DRUGS (1)
  1. XTAMPZA ER [Suspect]
     Active Substance: OXYCODONE
     Indication: Product used for unknown indication
     Dosage: UNK, UNKNOWN
     Route: 065

REACTIONS (9)
  - Hallucinations, mixed [Recovering/Resolving]
  - Delusion of grandeur [Recovering/Resolving]
  - Drug withdrawal syndrome [Unknown]
  - Blood pressure systolic increased [Unknown]
  - Nausea [Unknown]
  - Vomiting [Unknown]
  - Lacrimation increased [Unknown]
  - Diarrhoea [Unknown]
  - Insomnia [Recovered/Resolved]
